FAERS Safety Report 9990055 (Version 1)
Quarter: 2014Q1

REPORT INFORMATION
  Report Type: Report from Study
  Country: US (occurrence: US)
  Receive Date: 20140310
  Receipt Date: 20140310
  Transmission Date: 20141002
  Serious: No
  Sender: FDA-Public Use
  Company Number: US-ABBVIE-13P-163-1134457-00

PATIENT
  Age: 45 Year
  Sex: Female

DRUGS (15)
  1. HUMIRA [Suspect]
     Indication: CROHN^S DISEASE
     Dosage: LOADING DOSE
     Dates: start: 20130813, end: 20130813
  2. HUMIRA [Suspect]
     Indication: COLITIS ULCERATIVE
  3. PENTASA [Concomitant]
     Indication: COLITIS ULCERATIVE
  4. PENTASA [Concomitant]
     Indication: CROHN^S DISEASE
  5. ENTOCORT [Concomitant]
     Indication: COLITIS ULCERATIVE
  6. ENTOCORT [Concomitant]
     Indication: CROHN^S DISEASE
  7. RIFAMPIN [Concomitant]
     Indication: CHOLANGITIS SCLEROSING
  8. EPIPEN [Concomitant]
     Indication: HYPERSENSITIVITY
  9. FONDAPARINUX [Concomitant]
     Indication: THROMBOSIS
  10. ALLEGRA [Concomitant]
     Indication: HYPERSENSITIVITY
  11. NABUMETONE [Concomitant]
     Indication: OSTEOPOROSIS
  12. PHENERGAN [Concomitant]
     Indication: NAUSEA
  13. VITAMIN D [Concomitant]
     Indication: VITAMIN SUPPLEMENTATION
  14. MULTIVITAMIN [Concomitant]
     Indication: VITAMIN SUPPLEMENTATION
  15. CALCIUM [Concomitant]
     Indication: MINERAL SUPPLEMENTATION

REACTIONS (3)
  - Photophobia [Not Recovered/Not Resolved]
  - Headache [Recovered/Resolved]
  - Nausea [Recovered/Resolved]
